FAERS Safety Report 8302961 (Version 3)
Quarter: 2012Q4

REPORT INFORMATION
  Report Type: 
  Country: US (occurrence: US)
  Receive Date: 20111220
  Receipt Date: 20121016
  Transmission Date: 20130627
  Serious: Yes (Other)
  Sender: FDA-Public Use
  Company Number: US-ROCHE-1022798

PATIENT
  Age: 24 None
  Sex: Male
  Weight: 77.18 kg

DRUGS (2)
  1. ACCUTANE [Suspect]
     Indication: ACNE
     Dosage: 20 mg, 40 mg
     Route: 065
     Dates: start: 2001, end: 2002
  2. ACCUTANE [Suspect]
     Dosage: 20 mg, 40 mg
     Route: 065
     Dates: start: 2002

REACTIONS (5)
  - Gastric ulcer [Unknown]
  - Peptic ulcer [Unknown]
  - Colitis [Unknown]
  - Anxiety [Unknown]
  - Emotional distress [Unknown]
